FAERS Safety Report 6051322-2 (Version None)
Quarter: 2009Q1

REPORT INFORMATION
  Report Type: 
  Country: None (occurrence: None)
  Receive Date: 20090126
  Receipt Date: 20090114
  Transmission Date: 20090719
  Serious: Yes (Hospitalization)
  Sender: FDA-Public Use
  Company Number: FR-PFIZER INC-2009156531

PATIENT

DRUGS (7)
  1. ARACYTIN [Suspect]
     Indication: NEOPLASM MALIGNANT
     Route: 037
     Dates: start: 20081114, end: 20081114
  2. DEPO-MEDROL [Suspect]
     Dosage: 40 MG, 1X/DAY
     Route: 037
     Dates: start: 20081114, end: 20081114
  3. METHOTREXATE ^ROGER BELLON^ [Suspect]
     Indication: NEOPLASM MALIGNANT
     Dosage: 15 MG, 1X/DAY
     Route: 037
     Dates: start: 20081114, end: 20081114
  4. RITUXIMAB [Concomitant]
     Dosage: 570 MG, 1X/DAY
     Route: 042
     Dates: start: 20081114, end: 20081114
  5. CISPLATIN [Concomitant]
     Dosage: 150 MG, 1X/DAY
     Route: 042
     Dates: start: 20081114, end: 20081114
  6. DEXAMETHASONE SODIUM PHOSPHATE [Concomitant]
     Dosage: 20 MG, 3X/DAY
     Route: 042
     Dates: start: 20081115, end: 20081116
  7. CYTARABINE [Concomitant]
     Dosage: 3 G, 3X/DAY
     Route: 042
     Dates: start: 20081115, end: 20081116

REACTIONS (1)
  - MYELITIS [None]
